FAERS Safety Report 6082381-9 (Version None)
Quarter: 2009Q1

REPORT INFORMATION
  Report Type: 
  Country: None (occurrence: None)
  Receive Date: 20090130
  Receipt Date: 20080109
  Transmission Date: 20090719
  Serious: Yes (Other)
  Sender: FDA-Public Use
  Company Number: 8028953

PATIENT
  Sex: Male
  Weight: 79.55 kg

DRUGS (4)
  1. KEPPRA [Suspect]
     Indication: CONVULSION
     Dosage: 500 MG 2/D PO
     Route: 048
     Dates: start: 20071206, end: 20071207
  2. KEPPRA [Suspect]
     Indication: CONVULSION
     Dosage: 1500 MG PO
     Route: 048
     Dates: start: 20071207, end: 20071208
  3. KEPPRA [Suspect]
     Indication: CONVULSION
     Dosage: 1000 MG 2/ D PO
     Route: 048
     Dates: start: 20071208, end: 20071201
  4. KEPPRA [Suspect]
     Indication: CONVULSION
     Dosage: 250 MG 2/D PO
     Route: 048
     Dates: start: 20071201

REACTIONS (2)
  - DEPRESSION [None]
  - SUICIDAL IDEATION [None]
